FAERS Safety Report 7235885-7 (Version None)
Quarter: 2011Q1

REPORT INFORMATION
  Report Type: 
  Country: None (occurrence: None)
  Receive Date: 20110120
  Receipt Date: 20110113
  Transmission Date: 20110831
  Serious: Yes (Other)
  Sender: FDA-Public Use
  Company Number: A0907397A

PATIENT
  Age: 67 Year
  Sex: Female

DRUGS (15)
  1. CIMETIDINE [Suspect]
     Indication: GASTROINTESTINAL DISORDER
     Dosage: 200MG UNKNOWN
     Route: 065
     Dates: end: 20101201
  2. IMMUNE GLOBULIN (HUMAN) [Suspect]
     Indication: MYASTHENIA GRAVIS
     Dosage: 125G MONTHLY
     Route: 042
     Dates: start: 20080520, end: 20101027
  3. MESTINON [Concomitant]
  4. LANTUS [Concomitant]
  5. LOSARTAN [Concomitant]
  6. METOPROLOL [Concomitant]
  7. SYNTHROID [Concomitant]
  8. EFFEXOR [Concomitant]
  9. ASPIRIN [Concomitant]
  10. NYSTATIN [Concomitant]
  11. LIPITOR [Concomitant]
  12. ONDANSETRON [Concomitant]
  13. ALBUTEROL [Concomitant]
  14. HYDROCHLOROTHIAZIDE [Concomitant]
  15. HYDRALAZINE [Concomitant]

REACTIONS (12)
  - BLOOD UREA NITROGEN/CREATININE RATIO INCREASED [None]
  - RENAL ATROPHY [None]
  - GLOMERULAR FILTRATION RATE DECREASED [None]
  - BLOOD UREA INCREASED [None]
  - BLOOD GLUCOSE INCREASED [None]
  - URINE PROTEIN/CREATININE RATIO INCREASED [None]
  - PROTEINURIA [None]
  - GLUCOSE URINE PRESENT [None]
  - RENAL FAILURE [None]
  - BLOOD CREATININE INCREASED [None]
  - PROTEIN URINE PRESENT [None]
  - DIABETIC NEUROPATHY [None]
